FAERS Safety Report 6825071-4 (Version None)
Quarter: 2010Q3

REPORT INFORMATION
  Report Type: 
  Country: None (occurrence: None)
  Receive Date: 20100708
  Receipt Date: 20061228
  Transmission Date: 20110219
  Serious: No
  Sender: FDA-Public Use
  Company Number: US-PFIZER INC-2007001603

PATIENT
  Sex: Male
  Weight: 47.63 kg

DRUGS (5)
  1. CHANTIX [Suspect]
     Indication: SMOKING CESSATION THERAPY
     Route: 048
     Dates: start: 20061201
  2. FORADIL [Concomitant]
     Indication: EMPHYSEMA
     Route: 055
  3. LYRICA [Concomitant]
     Route: 048
  4. AMBIEN [Concomitant]
     Route: 048
  5. XANAX [Concomitant]
     Route: 048

REACTIONS (1)
  - NAUSEA [None]
